FAERS Safety Report 18522177 (Version 1)
Quarter: 2020Q4

REPORT INFORMATION
  Report Type: Spontaneous
  Country: US (occurrence: US)
  Receive Date: 20201119
  Receipt Date: 20201119
  Transmission Date: 20210114
  Serious: Yes (Life-Threatening)
  Sender: FDA-Public Use
  Company Number: None

PATIENT
  Age: 58 Year
  Sex: Male
  Weight: 99.79 kg

DRUGS (1)
  1. ELIQUIS [Suspect]
     Active Substance: APIXABAN
     Indication: ATRIAL FIBRILLATION
     Route: 048

REACTIONS (7)
  - Shock [None]
  - Hepatic failure [None]
  - Acidosis [None]
  - Acute kidney injury [None]
  - Cardiac arrest [None]
  - Blood loss anaemia [None]
  - Dialysis [None]

NARRATIVE: CASE EVENT DATE: 20201102
